FAERS Safety Report 26062656 (Version 2)
Quarter: 2025Q4

REPORT INFORMATION
  Report Type: Spontaneous
  Country: US (occurrence: US)
  Receive Date: 20251119
  Receipt Date: 20251231
  Transmission Date: 20260117
  Serious: No
  Sender: TORRENT PHARMA INC.
  Company Number: US-TORRENT-00014604

PATIENT

DRUGS (1)
  1. LURASIDONE [Suspect]
     Active Substance: LURASIDONE
     Indication: Product used for unknown indication
     Route: 065

REACTIONS (4)
  - Adverse drug reaction [Unknown]
  - Product contamination [Unknown]
  - Product cleaning inadequate [Unknown]
  - Product container issue [Unknown]
